FAERS Safety Report 5737073-X (Version None)
Quarter: 2008Q2

REPORT INFORMATION
  Report Type: 
  Country: None (occurrence: None)
  Receive Date: 20080514
  Receipt Date: 20080505
  Transmission Date: 20081010
  Serious: Yes (Other)
  Sender: FDA-Public Use
  Company Number: US-BAYER-200818463NA

PATIENT
  Age: 36 Year
  Sex: Female

DRUGS (1)
  1. ULTRAVIST 150 [Suspect]
     Indication: DRUG USE FOR UNKNOWN INDICATION
     Dates: start: 20080326, end: 20080326

REACTIONS (4)
  - OBSTRUCTION [None]
  - SNEEZING [None]
  - SPEECH DISORDER [None]
  - SWOLLEN TONGUE [None]
